FAERS Safety Report 10291397 (Version 2)
Quarter: 2014Q3

REPORT INFORMATION
  Report Type: Spontaneous
  Country: US (occurrence: US)
  Receive Date: 20140710
  Receipt Date: 20140710
  Transmission Date: 20150326
  Serious: No
  Sender: FDA-Public Use
  Company Number: US-PURDUE-USA-2013-0105142

PATIENT
  Sex: Female

DRUGS (4)
  1. BUTRANS [Suspect]
     Active Substance: BUPRENORPHINE
     Dosage: 5 MCG/HR, WEEKLY
     Route: 062
  2. BUTRANS [Suspect]
     Active Substance: BUPRENORPHINE
     Indication: PAIN
     Dosage: 20 MCG/HR, WEEKLY
     Route: 062
  3. BUTRANS [Suspect]
     Active Substance: BUPRENORPHINE
     Dosage: 10 MCG/HR, WEEKLY
     Route: 062
  4. VICODIN [Concomitant]
     Active Substance: ACETAMINOPHEN\HYDROCODONE BITARTRATE
     Indication: PRODUCT USED FOR UNKNOWN INDICATION
     Route: 048

REACTIONS (20)
  - Application site haemorrhage [Unknown]
  - Unevaluable event [Unknown]
  - Application site pruritus [Unknown]
  - Application site erythema [Unknown]
  - Inadequate analgesia [Unknown]
  - Application site rash [Unknown]
  - Drug ineffective [Unknown]
  - Fatigue [Recovering/Resolving]
  - Product adhesion issue [Unknown]
  - Diarrhoea [Recovering/Resolving]
  - Sneezing [Recovering/Resolving]
  - Application site discharge [Unknown]
  - Pain [Not Recovered/Not Resolved]
  - Drug withdrawal syndrome [Recovering/Resolving]
  - Myalgia [Recovering/Resolving]
  - Application site warmth [Unknown]
  - Application site vesicles [Unknown]
  - Application site pain [Unknown]
  - Hyperhidrosis [Recovering/Resolving]
  - Feeling abnormal [Unknown]
